FAERS Safety Report 9934138 (Version 2)
Quarter: 2014Q1

REPORT INFORMATION
  Report Type: Spontaneous
  Country: US (occurrence: US)
  Receive Date: 20140228
  Receipt Date: 20140228
  Transmission Date: 20141002
  Serious: No
  Sender: FDA-Public Use
  Company Number: US-ABBVIE-14P-163-1185444-00

PATIENT
  Sex: Male
  Weight: 93.07 kg

DRUGS (2)
  1. ANDROGEL [Suspect]
     Indication: BLOOD TESTOSTERONE DECREASED
     Dates: start: 20130601, end: 201308
  2. ANDROGEL [Suspect]
     Dates: start: 201309, end: 201312

REACTIONS (2)
  - Blood testosterone decreased [Unknown]
  - Drug ineffective [Unknown]
